FAERS Safety Report 14873004 (Version 2)
Quarter: 2018Q2

REPORT INFORMATION
  Report Type: Report from Study
  Country: CA (occurrence: CA)
  Receive Date: 20180510
  Receipt Date: 20180527
  Transmission Date: 20180711
  Serious: No
  Sender: FDA-Public Use
  Company Number: CA-BIOGEN-2018BI00570611

PATIENT
  Sex: Female

DRUGS (1)
  1. TYSABRI [Suspect]
     Active Substance: NATALIZUMAB
     Indication: MULTIPLE SCLEROSIS
     Dosage: INFUSE OVER 1 HOUR
     Route: 042
     Dates: start: 20150608

REACTIONS (1)
  - Uterine polyp [Recovered/Resolved]
